FAERS Safety Report 11893821 (Version 1)
Quarter: 2016Q1

REPORT INFORMATION
  Report Type: Not Available
  Country: US (occurrence: US)
  Receive Date: 20160106
  Receipt Date: 20160106
  Transmission Date: 20160526
  Serious: No
  Sender: FDA-Public Use
  Company Number: US-LUPIN PHARMACEUTICALS INC.-E2B_00003807

PATIENT
  Age: 4 Year
  Sex: Female

DRUGS (2)
  1. CEFDINIR FOR ORAL SUSPENSION USP 250 MG /5 ML [Suspect]
     Active Substance: CEFDINIR
     Indication: SINUSITIS
     Dates: start: 20150612
  2. CEFDINIR FOR ORAL SUSPENSION USP 250 MG /5 ML [Suspect]
     Active Substance: CEFDINIR
     Indication: EAR INFECTION

REACTIONS (2)
  - Incorrect product storage [Unknown]
  - Pyrexia [Not Recovered/Not Resolved]
